FAERS Safety Report 6193309-5 (Version None)
Quarter: 2009Q2

REPORT INFORMATION
  Report Type: 
  Country: None (occurrence: None)
  Receive Date: 20090518
  Receipt Date: 20090508
  Transmission Date: 20091009
  Serious: Yes (Hospitalization)
  Sender: FDA-Public Use
  Company Number: PHHO2008NZ08988

PATIENT
  Sex: Male

DRUGS (1)
  1. RAD 666 RAD+TAB+PTR [Suspect]
     Indication: RENAL TRANSPLANT
     Dosage: 1.5 MG, BID
     Route: 048
     Dates: start: 20070628

REACTIONS (2)
  - HAEMATURIA [None]
  - PYREXIA [None]
